FAERS Safety Report 4791529-5 (Version None)
Quarter: 2005Q4

REPORT INFORMATION
  Report Type: 
  Country: None (occurrence: None)
  Receive Date: 20051007
  Receipt Date: 20050107
  Transmission Date: 20060501
  Serious: No
  Sender: FDA-Public Use
  Company Number: US-BRISTOL-MYERS SQUIBB COMPANY-12827820

PATIENT

DRUGS (1)
  1. AVAPRO [Suspect]
     Dates: start: 20041201

REACTIONS (2)
  - PRURITUS [None]
  - URTICARIA [None]
